FAERS Safety Report 9055778 (Version 2)
Quarter: 2013Q1

REPORT INFORMATION
  Report Type: Spontaneous
  Country: SE (occurrence: SE)
  Receive Date: 20130206
  Receipt Date: 20130325
  Transmission Date: 20140127
  Serious: Yes (Life-Threatening, Hospitalization, Disabling, Other)
  Sender: FDA-Public Use
  Company Number: SE-009507513-1301SWE013720

PATIENT
  Age: 55 Year
  Sex: Female

DRUGS (3)
  1. LOSARTAN POTASSIUM [Suspect]
     Indication: HYPERTENSION
     Dosage: 50 MG, QD
     Route: 048
     Dates: start: 20120111, end: 20120111
  2. TRIPTANS [Concomitant]
  3. SELECTIVE SEROTONIN REUPTAKE INHIBITORS [Concomitant]

REACTIONS (3)
  - Arteriospasm coronary [Recovered/Resolved]
  - Cardiogenic shock [Recovered/Resolved]
  - Cardiac failure [Recovered/Resolved]
